FAERS Safety Report 5092650-7 (Version None)
Quarter: 2006Q3

REPORT INFORMATION
  Report Type: 
  Country: None (occurrence: None)
  Receive Date: 20060828
  Receipt Date: 20060815
  Transmission Date: 20061208
  Serious: Yes (Death, Disabling, Other)
  Sender: FDA-Public Use
  Company Number: 2006072914

PATIENT
  Age: 64 Year
  Sex: Male
  Weight: 79.8331 kg

DRUGS (11)
  1. CELEBREX [Suspect]
     Indication: DRUG USE FOR UNKNOWN INDICATION
     Dosage: 200 MG (200 MG, 1 IN 1D), GASTROSTOMY TUBE
  2. WELLBUTRIN XL [Concomitant]
  3. PLAVIX [Concomitant]
  4. SKELAXIN [Concomitant]
  5. ULTRACET [Concomitant]
  6. GLUCOSAMINE [Concomitant]
  7. VITAMIN B6 [Concomitant]
  8. ALL OTHER THERAPEUTIC PRODUCTS [Concomitant]
  9. ZINC [Concomitant]
  10. CALCIUM GLUCONATE [Concomitant]
  11. AMINO ACIDS [Concomitant]

REACTIONS (6)
  - AMYOTROPHIC LATERAL SCLEROSIS [None]
  - ANGIOPLASTY [None]
  - ARTERIAL STENOSIS [None]
  - CRANIAL NERVE PALSIES MULTIPLE [None]
  - NERVE ROOT INJURY CERVICAL [None]
  - RESPIRATORY FAILURE [None]
